FAERS Safety Report 9026624 (Version 1)
Quarter: 2013Q1

REPORT INFORMATION
  Report Type: Spontaneous
  Country: RU (occurrence: RU)
  Receive Date: 20130123
  Receipt Date: 20130123
  Transmission Date: 20140127
  Serious: Yes (Hospitalization, Other)
  Sender: FDA-Public Use
  Company Number: RU-BAYER-2013-008331

PATIENT
  Age: 23 Year
  Sex: Female

DRUGS (5)
  1. YARINA [Suspect]
     Route: 048
  2. ZI-FACTOR [Concomitant]
  3. FLEMOXIN [Concomitant]
  4. LASOLVAN [Concomitant]
  5. ACC [Concomitant]

REACTIONS (3)
  - Pulmonary embolism [None]
  - Haemoptysis [None]
  - Pneumonia [None]
